FAERS Safety Report 7741161-6 (Version None)
Quarter: 2011Q3

REPORT INFORMATION
  Report Type: 
  Country: None (occurrence: None)
  Receive Date: 20110909
  Receipt Date: 20110902
  Transmission Date: 20111222
  Serious: Yes (Other)
  Sender: FDA-Public Use
  Company Number: FR-ACTELION-A-CH2011-46992

PATIENT
  Sex: Male
  Weight: 68 kg

DRUGS (5)
  1. TRACLEER [Suspect]
     Indication: SKIN ULCER
     Dosage: 62.5 MG, BID
     Route: 048
     Dates: start: 20101201, end: 20101201
  2. PLAQUENIL [Concomitant]
  3. ENALAPRIL MALEATE [Concomitant]
  4. PRAVASTATIN SODIUM [Concomitant]
  5. AMLODIPINE BESYLATE [Concomitant]

REACTIONS (4)
  - GASTROINTESTINAL DISORDER [None]
  - DIARRHOEA [None]
  - NAUSEA [None]
  - ASTHENIA [None]
